FAERS Safety Report 9685234 (Version 3)
Quarter: 2013Q4

REPORT INFORMATION
  Report Type: Spontaneous
  Country: US (occurrence: US)
  Receive Date: 20131113
  Receipt Date: 20131231
  Transmission Date: 20140711
  Serious: Yes (Hospitalization)
  Sender: FDA-Public Use
  Company Number: US-BAYER-2013-135550

PATIENT
  Age: 17 Year
  Sex: Female
  Weight: 90.7 kg

DRUGS (4)
  1. YASMIN [Suspect]
     Dosage: UNK
     Dates: start: 2003, end: 20060308
  2. CLINDESSE [Concomitant]
  3. LEXAPRO [Concomitant]
     Dosage: 15 MG, UNK
     Dates: start: 20060308
  4. CEFTIN [Concomitant]
     Dosage: 500 MG, UNK
     Dates: start: 20060308

REACTIONS (17)
  - Pulmonary embolism [None]
  - Injury [None]
  - Chest pain [None]
  - Pain [None]
  - General physical health deterioration [None]
  - Anxiety [None]
  - Emotional distress [None]
  - Anhedonia [None]
  - Mental disorder [None]
  - Depression [None]
  - Anxiety [None]
  - Chest discomfort [None]
  - Cough [None]
  - Haemoptysis [None]
  - Pain in extremity [None]
  - Dyspnoea [None]
  - Lung infiltration [None]
